FAERS Safety Report 7236336-9 (Version None)
Quarter: 2011Q1

REPORT INFORMATION
  Report Type: 
  Country: None (occurrence: None)
  Receive Date: 20110120
  Receipt Date: 20090428
  Transmission Date: 20110831
  Serious: Yes (Hospitalization)
  Sender: FDA-Public Use
  Company Number: FR-ABBOTT-09P-056-0571648-00

PATIENT
  Age: 40 Year
  Sex: Female
  Weight: 94 kg

DRUGS (3)
  1. DIETARY PILLS [Concomitant]
     Indication: OVERWEIGHT
     Dosage: NOT REPORTED
  2. LEVOTHYROXINE SODIUM [Suspect]
     Indication: PRODUCT USED FOR UNKNOWN INDICATION
     Dosage: HUGE AMOUNT
  3. CLORAZEPATE DIPOTASSIUM [Concomitant]
     Indication: AGITATION
     Dosage: NOT REPORTED
     Route: 048

REACTIONS (2)
  - HYPERTHYROIDISM [None]
  - OVERDOSE [None]
